FAERS Safety Report 10474710 (Version 1)
Quarter: 2014Q3

REPORT INFORMATION
  Report Type: Spontaneous
  Country: DE (occurrence: DE)
  Receive Date: 20140925
  Receipt Date: 20140925
  Transmission Date: 20150326
  Serious: Yes (Life-Threatening, Other)
  Sender: FDA-Public Use
  Company Number: DE-ROCHE-1465520

PATIENT
  Age: 48 Year
  Sex: Female

DRUGS (7)
  1. TAZOBACTAM [Concomitant]
     Active Substance: TAZOBACTAM
  2. PIPERACILLIN [Concomitant]
     Active Substance: PIPERACILLIN
  3. DAUNORUBICIN [Suspect]
     Active Substance: DAUNORUBICIN
     Indication: ACUTE PROMYELOCYTIC LEUKAEMIA
     Route: 065
  4. CYTARABINE. [Suspect]
     Active Substance: CYTARABINE
     Indication: ACUTE PROMYELOCYTIC LEUKAEMIA
     Route: 065
  5. VESANOID [Suspect]
     Active Substance: TRETINOIN
     Indication: ACUTE PROMYELOCYTIC LEUKAEMIA
     Route: 048
  6. POSACONAZOLE [Suspect]
     Active Substance: POSACONAZOLE
     Indication: ACUTE PROMYELOCYTIC LEUKAEMIA
     Route: 065
  7. TIOGUANINE [Suspect]
     Active Substance: THIOGUANINE ANHYDROUS
     Indication: ACUTE PROMYELOCYTIC LEUKAEMIA
     Route: 065

REACTIONS (2)
  - Acute promyelocytic leukaemia differentiation syndrome [Recovering/Resolving]
  - Pulmonary oedema [Unknown]
